FAERS Safety Report 9028112 (Version 1)
Quarter: 2013Q1

REPORT INFORMATION
  Report Type: Spontaneous
  Country: US (occurrence: US)
  Receive Date: 20130123
  Receipt Date: 20130123
  Transmission Date: 20140127
  Serious: Yes (Hospitalization)
  Sender: FDA-Public Use
  Company Number: US-BAYER-2013-007453

PATIENT
  Age: 30 Year
  Sex: Female

DRUGS (2)
  1. GIANVI [Suspect]
  2. YAZ [Suspect]

REACTIONS (1)
  - Pulmonary embolism [Recovering/Resolving]
